FAERS Safety Report 12248281 (Version 1)
Quarter: 2016Q2

REPORT INFORMATION
  Report Type: Report from Study
  Country: US (occurrence: US)
  Receive Date: 20160408
  Receipt Date: 20160408
  Transmission Date: 20160815
  Serious: Yes (Hospitalization)
  Sender: FDA-Public Use
  Company Number: US-ROCHE-1738689

PATIENT
  Age: 37 Year
  Sex: Female

DRUGS (2)
  1. SOFOSBUVIR [Suspect]
     Active Substance: SOFOSBUVIR
     Indication: HEPATITIS C
     Route: 065
  2. RIBAVIRIN. [Suspect]
     Active Substance: RIBAVIRIN
     Indication: HEPATITIS C
     Dosage: 200 MG TO 400 MG DAILY OR TWICE PER DAY
     Route: 065

REACTIONS (4)
  - Vision blurred [Unknown]
  - Hepatic failure [Unknown]
  - Failure to thrive [Unknown]
  - Anaemia [Unknown]
